FAERS Safety Report 5634579-9 (Version None)
Quarter: 2008Q1

REPORT INFORMATION
  Report Type: 
  Country: None (occurrence: None)
  Receive Date: 20080222
  Receipt Date: 20080211
  Transmission Date: 20080703
  Serious: Yes (Life-Threatening, Hospitalization)
  Sender: FDA-Public Use
  Company Number: PS-AMGEN-US262231

PATIENT
  Sex: Female

DRUGS (8)
  1. ENBREL [Suspect]
     Indication: RHEUMATOID ARTHRITIS
     Route: 058
     Dates: start: 20071101, end: 20080101
  2. FUROSEMIDE [Concomitant]
     Dosage: UNKNOWN
     Route: 065
  3. LANSOPRAZOLE [Concomitant]
     Dosage: UNKNOWN
     Route: 065
  4. VALSARTAN [Concomitant]
     Dosage: UNKNOWN
     Route: 065
  5. MIRTAZAPINE [Concomitant]
     Dosage: UNKNOWN
     Route: 065
  6. FOLIC ACID [Concomitant]
     Dosage: UNKNOWN
     Route: 065
  7. METHOTREXATE [Concomitant]
     Dosage: UNKNOWN
     Route: 065
  8. SIMVASTATIN [Concomitant]
     Dosage: UNKNOWN
     Route: 065

REACTIONS (2)
  - DYSPNOEA [None]
  - PNEUMOCYSTIS JIROVECI PNEUMONIA [None]
